FAERS Safety Report 7027362-3 (Version None)
Quarter: 2010Q4

REPORT INFORMATION
  Report Type: 
  Country: None (occurrence: None)
  Receive Date: 20101004
  Receipt Date: 20100927
  Transmission Date: 20110411
  Serious: Yes (Other)
  Sender: FDA-Public Use
  Company Number: PHHY2010JP63745

PATIENT
  Age: 61 Year
  Sex: Male

DRUGS (1)
  1. LAMISIL [Suspect]
     Indication: ONYCHOMYCOSIS
     Dosage: 125 MG DAILY
     Route: 048
     Dates: start: 20091027, end: 20100921

REACTIONS (1)
  - NAIL GROWTH ABNORMAL [None]
